FAERS Safety Report 8577416-5 (Version None)
Quarter: 2012Q3

REPORT INFORMATION
  Report Type: 
  Country: None (occurrence: None)
  Receive Date: 20120725
  Receipt Date: 20120713
  Transmission Date: 20120928
  Serious: Yes (Other)
  Sender: FDA-Public Use
  Company Number: 2012MA008919

PATIENT
  Age: 20 Year
  Sex: Female

DRUGS (1)
  1. CITALOPRAM HYDROBROMIDE [Suspect]
     Indication: AGITATED DEPRESSION
     Dosage: 10 MG;QD;PO
     Route: 048
     Dates: start: 20101011

REACTIONS (2)
  - JAW DISORDER [None]
  - BRUXISM [None]
